FAERS Safety Report 9501669 (Version 1)
Quarter: 2013Q3

REPORT INFORMATION
  Report Type: Report from Study
  Country: US (occurrence: US)
  Receive Date: 20130905
  Receipt Date: 20130905
  Transmission Date: 20140515
  Serious: Yes (Other)
  Sender: FDA-Public Use
  Company Number: US-BAYER-2013-107467

PATIENT
  Age: 46 Year
  Sex: Female

DRUGS (5)
  1. BETASERON [Suspect]
     Indication: MULTIPLE SCLEROSIS
     Dosage: UNK
     Route: 058
     Dates: start: 19990824, end: 20020101
  2. BETASERON [Suspect]
     Indication: MULTIPLE SCLEROSIS
     Dosage: 8 MIU, QOD
     Route: 058
     Dates: start: 20130720
  3. MOTRIN [Concomitant]
     Indication: PREMEDICATION
  4. TYLENOL [PARACETAMOL] [Concomitant]
  5. ALEVE TABLET [Concomitant]
     Dosage: PRN

REACTIONS (3)
  - Aphagia [Recovered/Resolved]
  - Asthenia [Recovered/Resolved]
  - Pyrexia [Recovered/Resolved]
